FAERS Safety Report 24112007 (Version 8)
Quarter: 2025Q1

REPORT INFORMATION
  Report Type: Report from Study
  Country: CA (occurrence: CA)
  Receive Date: 20240719
  Receipt Date: 20250212
  Transmission Date: 20250408
  Serious: Yes (Hospitalization, Other)
  Sender: TAKEDA
  Company Number: CA-TAKEDA-2024TUS072159

PATIENT
  Age: 74 Year
  Sex: Female
  Weight: 77 kg

DRUGS (23)
  1. GLASSIA [Interacting]
     Active Substance: .ALPHA.1-PROTEINASE INHIBITOR HUMAN
     Indication: Alpha-1 antitrypsin deficiency
     Dosage: 5000 MILLIGRAM, 1/WEEK
     Dates: start: 20240626
  2. GLASSIA [Interacting]
     Active Substance: .ALPHA.1-PROTEINASE INHIBITOR HUMAN
  3. GLASSIA [Interacting]
     Active Substance: .ALPHA.1-PROTEINASE INHIBITOR HUMAN
     Dosage: 5 DOSAGE FORM, 1/WEEK
  4. GLASSIA [Interacting]
     Active Substance: .ALPHA.1-PROTEINASE INHIBITOR HUMAN
     Dosage: UNK UNK, 1/WEEK
  5. GLASSIA [Interacting]
     Active Substance: .ALPHA.1-PROTEINASE INHIBITOR HUMAN
     Dosage: UNK UNK, 1/WEEK
  6. GLASSIA [Interacting]
     Active Substance: .ALPHA.1-PROTEINASE INHIBITOR HUMAN
     Dosage: 5000 MILLIGRAM, 1/WEEK
  7. GLASSIA [Interacting]
     Active Substance: .ALPHA.1-PROTEINASE INHIBITOR HUMAN
     Dosage: 5000 MILLIGRAM, 1/WEEK
  8. CODEINE [Interacting]
     Active Substance: CODEINE
     Indication: Product used for unknown indication
  9. ACETAMINOPHEN [Suspect]
     Active Substance: ACETAMINOPHEN
     Indication: Product used for unknown indication
  10. SYMBICORT [Concomitant]
     Active Substance: BUDESONIDE\FORMOTEROL FUMARATE DIHYDRATE
     Dosage: UNK UNK, BID
  11. VENTOLIN [Concomitant]
     Active Substance: ALBUTEROL SULFATE
  12. SPIRIVA [Concomitant]
     Active Substance: TIOTROPIUM BROMIDE MONOHYDRATE
     Dosage: UNK UNK, BID
  13. LOSEC [Concomitant]
     Active Substance: OMEPRAZOLE
     Dosage: 20 MILLIGRAM, BID
  14. CALCIUM [Concomitant]
     Active Substance: CALCIUM
  15. PROLASTIN [Concomitant]
     Active Substance: .ALPHA.1-PROTEINASE INHIBITOR HUMAN
  16. BISOPROLOL [Concomitant]
     Active Substance: BISOPROLOL
  17. GABAPENTIN [Concomitant]
     Active Substance: GABAPENTIN
  18. GABAPENTIN [Concomitant]
     Active Substance: GABAPENTIN
  19. VITAMIN D [Concomitant]
     Active Substance: VITAMIN D NOS
  20. FERROUS FUMARATE [Concomitant]
     Active Substance: FERROUS FUMARATE
  21. CLOBETASOL [Concomitant]
     Active Substance: CLOBETASOL
  22. DIOVAN [Concomitant]
     Active Substance: VALSARTAN
  23. ENSTILAR [Concomitant]
     Active Substance: BETAMETHASONE DIPROPIONATE\CALCIPOTRIENE HYDRATE

REACTIONS (12)
  - Incoherent [Unknown]
  - Respiratory disorder [Recovered/Resolved with Sequelae]
  - Pneumonia [Recovering/Resolving]
  - Musculoskeletal chest pain [Recovering/Resolving]
  - Rib fracture [Recovering/Resolving]
  - Drug interaction [Unknown]
  - Extra dose administered [Unknown]
  - Inappropriate schedule of product administration [Unknown]
  - Blood pressure increased [Unknown]
  - Oxygen saturation abnormal [Unknown]
  - Chronic obstructive pulmonary disease [Unknown]
  - Back pain [Unknown]

NARRATIVE: CASE EVENT DATE: 20240708
